FAERS Safety Report 13675773 (Version 7)
Quarter: 2019Q1

REPORT INFORMATION
  Report Type: Spontaneous
  Country: US (occurrence: US)
  Receive Date: 20170621
  Receipt Date: 20190325
  Transmission Date: 20190417
  Serious: Yes (Hospitalization, Other)
  Sender: FDA-Public Use
  Company Number: US-ASTRAZENECA-2017SE63501

PATIENT
  Age: 1037 Month
  Sex: Female
  Weight: 88.9 kg

DRUGS (24)
  1. NEXIUM [Suspect]
     Active Substance: ESOMEPRAZOLE MAGNESIUM
     Indication: GASTROOESOPHAGEAL REFLUX DISEASE
     Route: 048
     Dates: start: 2004
  2. ASPIRIN. [Concomitant]
     Active Substance: ASPIRIN
     Dosage: EVERY MORNING
  3. LIPITOR [Concomitant]
     Active Substance: ATORVASTATIN CALCIUM
  4. NEXIUM [Suspect]
     Active Substance: ESOMEPRAZOLE MAGNESIUM
     Indication: APPENDICITIS
     Route: 048
     Dates: start: 2004
  5. NEXIUM [Suspect]
     Active Substance: ESOMEPRAZOLE MAGNESIUM
     Indication: DYSPHAGIA
     Route: 048
     Dates: start: 2004
  6. NEXIUM [Suspect]
     Active Substance: ESOMEPRAZOLE MAGNESIUM
     Indication: GASTROOESOPHAGEAL REFLUX DISEASE
     Dosage: OTC 2 CAPSULES AT ONCE DAILY
     Route: 048
  7. NEXIUM [Suspect]
     Active Substance: ESOMEPRAZOLE MAGNESIUM
     Indication: APPENDICITIS
     Dosage: OTC 2 CAPSULES AT ONCE DAILY
     Route: 048
  8. NEXIUM 24HR [Suspect]
     Active Substance: ESOMEPRAZOLE MAGNESIUM
     Route: 048
  9. TOPROL XL [Suspect]
     Active Substance: METOPROLOL SUCCINATE
     Indication: BLOOD PRESSURE ABNORMAL
     Dosage: GENERIC 25 MG, TWO TIMES A DAY
     Route: 048
     Dates: end: 2013
  10. NEXIUM [Suspect]
     Active Substance: ESOMEPRAZOLE MAGNESIUM
     Indication: OESOPHAGEAL DILATION PROCEDURE
     Route: 048
     Dates: start: 2004
  11. NEXIUM [Suspect]
     Active Substance: ESOMEPRAZOLE MAGNESIUM
     Indication: DIVERTICULITIS
     Dosage: OTC 2 CAPSULES AT ONCE DAILY
     Route: 048
  12. NEXIUM [Suspect]
     Active Substance: ESOMEPRAZOLE MAGNESIUM
     Indication: DYSPHAGIA
     Dosage: OTC 2 CAPSULES AT ONCE DAILY
     Route: 048
  13. GLUCOPHAGE [Concomitant]
     Active Substance: METFORMIN HYDROCHLORIDE
  14. NEXIUM [Suspect]
     Active Substance: ESOMEPRAZOLE MAGNESIUM
     Indication: FOOD CONTAMINATION
     Route: 048
     Dates: start: 2004
  15. NEXIUM [Suspect]
     Active Substance: ESOMEPRAZOLE MAGNESIUM
     Indication: FOOD CONTAMINATION
     Dosage: OTC 2 CAPSULES AT ONCE DAILY
     Route: 048
  16. NEXIUM [Suspect]
     Active Substance: ESOMEPRAZOLE MAGNESIUM
     Indication: DIVERTICULITIS
     Route: 048
     Dates: start: 2004
  17. NEXIUM [Suspect]
     Active Substance: ESOMEPRAZOLE MAGNESIUM
     Indication: REGURGITATION
     Route: 048
     Dates: start: 2004
  18. NEXIUM [Suspect]
     Active Substance: ESOMEPRAZOLE MAGNESIUM
     Indication: OESOPHAGEAL DILATION PROCEDURE
     Dosage: OTC 2 CAPSULES AT ONCE DAILY
     Route: 048
  19. NEXIUM [Suspect]
     Active Substance: ESOMEPRAZOLE MAGNESIUM
     Indication: REGURGITATION
     Dosage: OTC 2 CAPSULES AT ONCE DAILY
     Route: 048
  20. TOPROL XL [Suspect]
     Active Substance: METOPROLOL SUCCINATE
     Indication: CARDIAC DISORDER
     Route: 048
  21. TOPROL XL [Suspect]
     Active Substance: METOPROLOL SUCCINATE
     Indication: CARDIAC DISORDER
     Dosage: GENERIC 25 MG, TWO TIMES A DAY
     Route: 048
     Dates: end: 2013
  22. TOPROL XL [Suspect]
     Active Substance: METOPROLOL SUCCINATE
     Indication: BLOOD PRESSURE ABNORMAL
     Route: 048
  23. PLAVIX [Concomitant]
     Active Substance: CLOPIDOGREL BISULFATE
  24. NORVASC [Concomitant]
     Active Substance: AMLODIPINE BESYLATE

REACTIONS (33)
  - Retinal vascular occlusion [Unknown]
  - Laryngospasm [Unknown]
  - Lung disorder [Unknown]
  - Hypoacusis [Unknown]
  - Blood pressure inadequately controlled [Unknown]
  - Off label use [Unknown]
  - Product dose omission [Unknown]
  - Cerebrovascular accident [Unknown]
  - Bronchitis viral [Unknown]
  - Road traffic accident [Unknown]
  - Transient ischaemic attack [Unknown]
  - Musculoskeletal discomfort [Unknown]
  - Eye haemorrhage [Recovered/Resolved]
  - Chest pain [Unknown]
  - Bronchial disorder [Unknown]
  - Hypoaesthesia [Not Recovered/Not Resolved]
  - Tooth loss [Unknown]
  - Hypersensitivity [Unknown]
  - Drug hypersensitivity [Unknown]
  - Eye operation [Unknown]
  - Drug ineffective [Unknown]
  - Chest discomfort [Unknown]
  - Visual field defect [Unknown]
  - Hypertension [Unknown]
  - Dyspnoea [Unknown]
  - Dizziness [Unknown]
  - Product use in unapproved indication [Unknown]
  - Therapy cessation [Unknown]
  - Fall [Unknown]
  - Glaucoma [Unknown]
  - Arthropathy [Unknown]
  - Malaise [Unknown]
  - Abdominal pain upper [Unknown]

NARRATIVE: CASE EVENT DATE: 201704
